FAERS Safety Report 21902667 (Version 1)
Quarter: 2023Q1

REPORT INFORMATION
  Report Type: Spontaneous
  Country: DE (occurrence: None)
  Receive Date: 20230124
  Receipt Date: 20230124
  Transmission Date: 20230417
  Serious: Yes (Hospitalization)
  Sender: FDA-Public Use
  Company Number: DE-ROCHE-3117766

PATIENT
  Sex: Female

DRUGS (8)
  1. OCREVUS [Suspect]
     Active Substance: OCRELIZUMAB
     Indication: Relapsing multiple sclerosis
     Route: 042
     Dates: start: 2020
  2. SULFASALAZINE [Concomitant]
     Active Substance: SULFASALAZINE
     Dates: start: 2015
  3. SULFASALAZINE [Concomitant]
     Active Substance: SULFASALAZINE
     Dates: start: 202104
  4. NAPROXEN [Concomitant]
     Active Substance: NAPROXEN
     Dosage: 1-0-1
  5. CANDESARTAN [Concomitant]
     Active Substance: CANDESARTAN
  6. FLUOXETINE [Concomitant]
     Active Substance: FLUOXETINE HYDROCHLORIDE
  7. APIXABAN [Concomitant]
     Active Substance: APIXABAN
     Dosage: 1-0-1
  8. LEFLUNOMIDE [Concomitant]
     Active Substance: LEFLUNOMIDE
     Dates: start: 202207

REACTIONS (12)
  - Spondylitis [Not Recovered/Not Resolved]
  - Gamma-glutamyltransferase increased [Recovered/Resolved]
  - Alanine aminotransferase increased [Recovered/Resolved]
  - Aspartate aminotransferase increased [Recovered/Resolved]
  - Monocyte count increased [Recovered/Resolved]
  - Lymphocyte count increased [Recovered/Resolved]
  - Neutrophil count increased [Recovered/Resolved]
  - Basophil count increased [Recovered/Resolved]
  - White blood cell count increased [Recovered/Resolved]
  - Lymphocyte count decreased [Recovered/Resolved]
  - Neutrophil count decreased [Recovered/Resolved]
  - White blood cell count decreased [Recovered/Resolved]
